FAERS Safety Report 9152367 (Version 1)
Quarter: 2013Q1

REPORT INFORMATION
  Report Type: Spontaneous
  Country: US (occurrence: US)
  Receive Date: 20130308
  Receipt Date: 20130308
  Transmission Date: 20140127
  Serious: No
  Sender: FDA-Public Use
  Company Number: US-ASTRAZENECA-2013SE12571

PATIENT
  Age: 53 Year
  Sex: Male

DRUGS (1)
  1. ZESTRIL [Suspect]
     Route: 048

REACTIONS (5)
  - Dry eye [Unknown]
  - Throat irritation [Unknown]
  - Polydipsia [Unknown]
  - Dry mouth [Unknown]
  - Blood potassium increased [Unknown]
